FAERS Safety Report 5150989-0 (Version None)
Quarter: 2006Q4

REPORT INFORMATION
  Report Type: 
  Country: None (occurrence: None)
  Receive Date: 20061115
  Receipt Date: 20061106
  Transmission Date: 20070319
  Serious: No
  Sender: FDA-Public Use
  Company Number: 2006UW21853

PATIENT
  Age: 80 Year
  Sex: Male
  Weight: 65.8 kg

DRUGS (3)
  1. NEXIUM [Suspect]
     Indication: DYSPEPSIA
     Route: 048
  2. FOSOMAX [Concomitant]
  3. LIPITOR [Concomitant]

REACTIONS (3)
  - CHOLECYSTECTOMY [None]
  - RASH [None]
  - STOMACH DISCOMFORT [None]
